FAERS Safety Report 24021447 (Version 2)
Quarter: 2024Q2

REPORT INFORMATION
  Report Type: Spontaneous
  Country: FR (occurrence: FR)
  Receive Date: 20240627
  Receipt Date: 20240627
  Transmission Date: 20240716
  Serious: No
  Sender: FDA-Public Use
  Company Number: FR-ROCHE-3531887

PATIENT
  Age: 81 Year
  Sex: Female

DRUGS (1)
  1. VABYSMO [Suspect]
     Active Substance: FARICIMAB\FARICIMAB-SVOA
     Indication: Age-related macular degeneration
     Route: 065

REACTIONS (5)
  - Visual impairment [Unknown]
  - Nausea [Unknown]
  - Subretinal fluid [Unknown]
  - Visual acuity reduced [Unknown]
  - Glare [Unknown]

NARRATIVE: CASE EVENT DATE: 20240101
